FAERS Safety Report 9822076 (Version 3)
Quarter: 2014Q1

REPORT INFORMATION
  Report Type: Spontaneous
  Country: FR (occurrence: None)
  Receive Date: 20140115
  Receipt Date: 20140227
  Transmission Date: 20141002
  Serious: Yes (Hospitalization)
  Sender: FDA-Public Use
  Company Number: AXC-2014-000027

PATIENT
  Age: 47 Year
  Sex: Female

DRUGS (2)
  1. PYLERA [Suspect]
     Indication: HELICOBACTER GASTRITIS
     Route: 048
     Dates: start: 20130803, end: 20130813
  2. NI [Concomitant]

REACTIONS (2)
  - Neutropenia [None]
  - White blood cell count decreased [None]
